FAERS Safety Report 4830818-2 (Version None)
Quarter: 2005Q4

REPORT INFORMATION
  Report Type: 
  Country: None (occurrence: None)
  Receive Date: 20051117
  Receipt Date: 20050208
  Transmission Date: 20060501
  Serious: Yes (Life-Threatening, Hospitalization, Disabling)
  Sender: FDA-Public Use
  Company Number: DE-MERCK-0502DEU00067

PATIENT
  Age: 53 Year
  Sex: Male
  Weight: 71 kg

DRUGS (4)
  1. VIOXX [Suspect]
     Indication: BACK PAIN
     Route: 048
     Dates: start: 20020101, end: 20040401
  2. VIOXX [Suspect]
     Route: 048
     Dates: start: 20031128
  3. TOLPERISONE HYDROCHLORIDE [Concomitant]
     Route: 048
  4. TETRAZEPAM [Concomitant]
     Route: 048

REACTIONS (13)
  - ANXIETY [None]
  - BACK PAIN [None]
  - CHEST PAIN [None]
  - CONDITION AGGRAVATED [None]
  - CORONARY ARTERY STENOSIS [None]
  - GASTRITIS [None]
  - GASTRITIS EROSIVE [None]
  - MYOCARDIAL INFARCTION [None]
  - MYOCARDITIS [None]
  - PAIN [None]
  - PALPITATIONS [None]
  - PANIC ATTACK [None]
  - PANIC DISORDER [None]
